FAERS Safety Report 7949194-1 (Version None)
Quarter: 2011Q4

REPORT INFORMATION
  Report Type: 
  Country: None (occurrence: None)
  Receive Date: 20111130
  Receipt Date: 20111123
  Transmission Date: 20120403
  Serious: Yes (Other)
  Sender: FDA-Public Use
  Company Number: US-UCBSA-046428

PATIENT
  Sex: Female

DRUGS (1)
  1. KEPPRA [Suspect]
     Route: 048
     Dates: start: 20100701

REACTIONS (3)
  - CIRRHOSIS ALCOHOLIC [None]
  - HEPATIC FAILURE [None]
  - LIVER FUNCTION TEST ABNORMAL [None]
